FAERS Safety Report 5677402-9 (Version None)
Quarter: 2008Q1

REPORT INFORMATION
  Report Type: 
  Country: None (occurrence: None)
  Receive Date: 20080324
  Receipt Date: 20080314
  Transmission Date: 20080703
  Serious: Yes (Hospitalization, Other)
  Sender: FDA-Public Use
  Company Number: US-PFIZER INC-2007003116

PATIENT
  Sex: Male
  Weight: 163 kg

DRUGS (1)
  1. BEXTRA [Suspect]
     Indication: BACK INJURY
     Dates: start: 20040526, end: 20040604

REACTIONS (2)
  - PULMONARY EMBOLISM [None]
  - STEVENS-JOHNSON SYNDROME [None]
